FAERS Safety Report 5445934-4 (Version None)
Quarter: 2007Q3

REPORT INFORMATION
  Report Type: 
  Country: None (occurrence: None)
  Receive Date: 20070904
  Receipt Date: 20070824
  Transmission Date: 20080115
  Serious: Yes (Hospitalization)
  Sender: FDA-Public Use
  Company Number: 2007AL002854

PATIENT
  Age: 46 Year
  Sex: Female

DRUGS (3)
  1. HYDROCORTISONE 2.5% CREAM [Suspect]
     Indication: PROPHYLAXIS AGAINST TRANSPLANT REJECTION
  2. TACROLIMUS [Concomitant]
  3. PREDNISOLONE [Concomitant]

REACTIONS (6)
  - ASCITES INFECTION [None]
  - CHILLS [None]
  - DIABETES MELLITUS [None]
  - NAUSEA [None]
  - PERITONITIS BACTERIAL [None]
  - VOMITING [None]
